FAERS Safety Report 6142565-8 (Version None)
Quarter: 2009Q2

REPORT INFORMATION
  Report Type: 
  Country: None (occurrence: None)
  Receive Date: 20090403
  Receipt Date: 20090325
  Transmission Date: 20091009
  Serious: Yes (Other)
  Sender: FDA-Public Use
  Company Number: CA-JNJFOC-20090307086

PATIENT
  Sex: Female

DRUGS (2)
  1. REMICADE [Suspect]
     Route: 042
  2. REMICADE [Suspect]
     Indication: COLITIS ULCERATIVE
     Dosage: INFUSIONS AT WEEK 0,2,6, THEN EVERY 8 WEEKS
     Route: 042

REACTIONS (3)
  - ANTINUCLEAR ANTIBODY POSITIVE [None]
  - MYOSITIS [None]
  - OEDEMA PERIPHERAL [None]
